FAERS Safety Report 4523432-X (Version None)
Quarter: 2004Q4

REPORT INFORMATION
  Report Type: 
  Country: None (occurrence: None)
  Receive Date: 20041117
  Receipt Date: 20040708
  Transmission Date: 20050328
  Serious: Yes (Hospitalization, Other)
  Sender: FDA-Public Use
  Company Number: DE-JNJFOC-20040701773

PATIENT
  Age: 85 Year
  Sex: Female

DRUGS (27)
  1. LEVOFLOXACIN [Suspect]
     Indication: PNEUMONIA
     Dosage: INTRAVENOUS
     Route: 042
     Dates: start: 20031202, end: 20031203
  2. LEVOFLOXACIN [Suspect]
     Indication: PNEUMONIA
     Dosage: ORAL
     Route: 048
     Dates: start: 20031204, end: 20031208
  3. PLACEBO (PLACEBO) INJECTION [Suspect]
     Indication: PNEUMONIA
     Dosage: INTRAVENOUS
     Route: 042
     Dates: start: 20031202, end: 20031203
  4. PLACEBO (PLACEBO) TABLETS [Suspect]
     Indication: PNEUMONIA
     Dosage: ORAL
     Route: 048
     Dates: start: 20031204, end: 20031208
  5. SYNTHROID [Concomitant]
  6. ALLOPURINOL [Concomitant]
  7. ALDACTONE [Concomitant]
  8. DIGOXIN [Concomitant]
  9. LASIX [Concomitant]
  10. POTASSIUM CHLORIDE [Concomitant]
  11. PHYTONADIONE [Concomitant]
  12. ADVAIR (SERETIDE MITE) [Concomitant]
  13. NYSTATIN [Concomitant]
  14. MIRAPEX [Concomitant]
  15. ENDOCET (OXYCOCET) [Concomitant]
  16. QUININE SULFATE (QUININE SULFATE) [Concomitant]
  17. GEMFIBROZIL [Concomitant]
  18. RESTORIL [Concomitant]
  19. INSULIN [Concomitant]
  20. GUIFENESIN (GUAIFENESIN) [Concomitant]
  21. PEPCID [Concomitant]
  22. GLUCOTROL XL [Concomitant]
  23. HEPARIN [Concomitant]
  24. COUMADIN [Concomitant]
  25. ULTRACET (HYDROTALCITE) [Concomitant]
  26. CLINDAMYCIN (CLINDAMYCIN) [Concomitant]
  27. MAGNESIUM SULFATE [Concomitant]

REACTIONS (2)
  - CLOSTRIDIUM COLITIS [None]
  - TORSADE DE POINTES [None]
